FAERS Safety Report 9804138 (Version 4)
Quarter: 2014Q1

REPORT INFORMATION
  Report Type: Spontaneous
  Country: US (occurrence: US)
  Receive Date: 20140108
  Receipt Date: 20140227
  Transmission Date: 20141002
  Serious: Yes (Other)
  Sender: FDA-Public Use
  Company Number: US-GILEAD-2014-0091247

PATIENT
  Age: 62 Year
  Sex: Male

DRUGS (5)
  1. SOVALDI [Suspect]
     Indication: HEPATITIS C
     Dosage: 400 MG, QD
     Route: 048
     Dates: start: 20131223
  2. RIBAVIRIN [Suspect]
     Indication: HEPATITIS C
     Dosage: 600 MG, BID
     Route: 065
     Dates: start: 20131223
  3. PEGASYS [Suspect]
     Indication: HEPATITIS C
     Dosage: 180 MCG, Q1WK
     Route: 065
     Dates: start: 20131223, end: 20140106
  4. LOPRESSOR [Concomitant]
     Dosage: 50 MG, UNK
  5. PROGRAF [Concomitant]
     Dosage: 1 MG, QD

REACTIONS (3)
  - Jaundice [Not Recovered/Not Resolved]
  - Blood alkaline phosphatase increased [Not Recovered/Not Resolved]
  - Blood bilirubin increased [Recovering/Resolving]
